FAERS Safety Report 12491635 (Version 3)
Quarter: 2016Q3

REPORT INFORMATION
  Report Type: Spontaneous
  Country: US (occurrence: US)
  Receive Date: 20160623
  Receipt Date: 20160825
  Transmission Date: 20161109
  Serious: No
  Sender: FDA-Public Use
  Company Number: US-PFIZER INC-2016285203

PATIENT
  Age: 65 Year
  Sex: Female
  Weight: 84 kg

DRUGS (2)
  1. LYRICA [Suspect]
     Active Substance: PREGABALIN
     Indication: SCIATIC NERVE INJURY
     Dosage: 50 MG, 2X/DAY
     Dates: start: 201604
  2. LYRICA [Suspect]
     Active Substance: PREGABALIN
     Indication: NEURALGIA

REACTIONS (8)
  - Joint swelling [Recovered/Resolved]
  - Eye irritation [Recovered/Resolved]
  - Corneal reflex decreased [Recovered/Resolved]
  - Foreign body sensation in eyes [Recovered/Resolved]
  - Weight increased [Recovered/Resolved]
  - Vision blurred [Recovered/Resolved]
  - Increased appetite [Recovered/Resolved]
  - Visual impairment [Recovered/Resolved]

NARRATIVE: CASE EVENT DATE: 2016
